FAERS Safety Report 4312549-0 (Version None)
Quarter: 2004Q1

REPORT INFORMATION
  Report Type: 
  Country: None (occurrence: None)
  Receive Date: 20040305
  Receipt Date: 20040223
  Transmission Date: 20041129
  Serious: Yes (Other)
  Sender: FDA-Public Use
  Company Number: JP-BRISTOL-MYERS SQUIBB COMPANY-12520003

PATIENT
  Age: 68 Year
  Sex: Male

DRUGS (9)
  1. UFT [Suspect]
     Indication: PROSTATE CANCER
  2. CISPLATIN [Suspect]
     Indication: PROSTATE CANCER
     Route: 013
  3. CISPLATIN [Suspect]
     Indication: BLADDER CANCER
     Route: 013
  4. CARBOPLATIN [Suspect]
  5. ADRIAMYCIN PFS [Suspect]
     Indication: PROSTATE CANCER
  6. ETHINYL ESTRADIOL TAB [Suspect]
     Indication: PROSTATE CANCER
     Route: 048
  7. HONVAN [Suspect]
  8. VINBLASTINE SULFATE [Suspect]
  9. TAXOTERE [Suspect]

REACTIONS (3)
  - BLADDER CANCER [None]
  - METASTATIC NEOPLASM [None]
  - PANCREATIC NEOPLASM [None]
